FAERS Safety Report 4967124-1 (Version None)
Quarter: 2006Q2

REPORT INFORMATION
  Report Type: 
  Country: None (occurrence: None)
  Receive Date: 20060403
  Receipt Date: 20060323
  Transmission Date: 20061013
  Serious: Yes (Death, Other)
  Sender: FDA-Public Use
  Company Number: 2005103222

PATIENT
  Age: 44 Year
  Sex: Male

DRUGS (9)
  1. BEXTRA [Suspect]
     Indication: ILL-DEFINED DISORDER
     Dosage: (100 MG)
     Dates: start: 20020601, end: 20030101
  2. ACCUPRIL [Concomitant]
  3. COREG [Concomitant]
  4. ASPIRIN [Concomitant]
  5. ZOCOR [Concomitant]
  6. PLAVIX [Concomitant]
  7. OXYCONTIN [Concomitant]
  8. WELLBUTRIN [Concomitant]
  9. VIOXX [Concomitant]

REACTIONS (1)
  - MYOCARDIAL INFARCTION [None]
